FAERS Safety Report 9867524 (Version 2)
Quarter: 2014Q1

REPORT INFORMATION
  Report Type: Spontaneous
  Country: US (occurrence: US)
  Receive Date: 20140204
  Receipt Date: 20140204
  Transmission Date: 20141002
  Serious: No
  Sender: FDA-Public Use
  Company Number: US-GALDERMA-US13000989

PATIENT
  Age: 17 Year
  Sex: Male
  Weight: 86 kg

DRUGS (4)
  1. EPIDUO (ADAPALENE, BENZOYL PEROXIDE) GEL 0.1% / 2.5% [Suspect]
     Indication: ACNE
     Route: 061
     Dates: start: 20130125
  2. FACE AND BODY WASH [Concomitant]
     Route: 061
  3. DICLOFENAC [Concomitant]
     Indication: BACK PAIN
     Route: 048
  4. CLINDAMYCIN PHOSPHATE, BENZOYL PEROXIDE  GEL 1%/5% [Concomitant]
     Indication: ACNE
     Route: 061

REACTIONS (2)
  - Drug effect decreased [Not Recovered/Not Resolved]
  - Drug ineffective [Not Recovered/Not Resolved]
